FAERS Safety Report 10543799 (Version 1)
Quarter: 2014Q4

REPORT INFORMATION
  Report Type: Spontaneous
  Country: TR (occurrence: TR)
  Receive Date: 20141027
  Receipt Date: 20141027
  Transmission Date: 20150529
  Serious: Yes (Life-Threatening, Hospitalization)
  Sender: FDA-Public Use
  Company Number: TR-MYLANLABS-2014M1008151

PATIENT

DRUGS (2)
  1. INDAPAMIDE. [Suspect]
     Active Substance: INDAPAMIDE
     Indication: ESSENTIAL HYPERTENSION
     Route: 065
  2. ALKAPRESS PLUS [Concomitant]
     Indication: ESSENTIAL HYPERTENSION
     Route: 065

REACTIONS (4)
  - Cardiac arrest [Recovering/Resolving]
  - Ventricular tachyarrhythmia [None]
  - Hypokalaemia [Recovered/Resolved]
  - Ventricular fibrillation [None]
